FAERS Safety Report 4876971-6 (Version None)
Quarter: 2005Q4

REPORT INFORMATION
  Report Type: 
  Country: None (occurrence: None)
  Receive Date: 20051206
  Receipt Date: 20050922
  Transmission Date: 20060501
  Serious: No
  Sender: FDA-Public Use
  Company Number: USA0509108904

PATIENT
  Age: 37 Year
  Sex: Female

DRUGS (6)
  1. STRATTERA [Suspect]
     Indication: ATTENTION DEFICIT/HYPERACTIVITY DISORDER
     Dosage: 40 MG/1 DAY
     Dates: start: 20040101, end: 20050101
  2. CYMBALTA [Suspect]
     Indication: DEPRESSION
     Dosage: 60 MG/1 DAY
     Dates: start: 20040101
  3. XANAX [Concomitant]
  4. KLONOPIN [Concomitant]
  5. ALBUTEROL [Concomitant]
  6. VICODIN [Concomitant]

REACTIONS (1)
  - DRUG SCREEN POSITIVE [None]
